FAERS Safety Report 16218331 (Version 8)
Quarter: 2020Q4

REPORT INFORMATION
  Report Type: Spontaneous
  Country: US (occurrence: US)
  Receive Date: 20190419
  Receipt Date: 20201202
  Transmission Date: 20210113
  Serious: Yes (Other)
  Sender: FDA-Public Use
  Company Number: US-PFIZER INC-2018201095

PATIENT
  Age: 69 Year
  Sex: Female

DRUGS (4)
  1. XELJANZ [Suspect]
     Active Substance: TOFACITINIB CITRATE
     Dosage: 5 MG, 2X/DAY
     Route: 048
  2. XELJANZ [Suspect]
     Active Substance: TOFACITINIB CITRATE
     Dosage: 5 MG, 1X/DAY
  3. XELJANZ [Suspect]
     Active Substance: TOFACITINIB CITRATE
     Dosage: 5 MG, DAILY [TAKING ONE TABLET DAILY INSTEAD OF TWO AS PRESCRIBED]
     Route: 048
  4. XELJANZ [Suspect]
     Active Substance: TOFACITINIB CITRATE
     Dosage: 5 MG (TAKING 4 TO 5 DAYS A WEEK)

REACTIONS (5)
  - Bone pain [Unknown]
  - Intentional product misuse [Unknown]
  - Inflammatory marker increased [Unknown]
  - Bone disorder [Unknown]
  - Renal failure [Unknown]

NARRATIVE: CASE EVENT DATE: 2019
